FAERS Safety Report 5167409-2 (Version None)
Quarter: 2006Q4

REPORT INFORMATION
  Report Type: 
  Country: None (occurrence: None)
  Receive Date: 20061130
  Receipt Date: 20061120
  Transmission Date: 20070319
  Serious: Yes (Hospitalization, Other)
  Sender: FDA-Public Use
  Company Number: 2006112917

PATIENT
  Age: 57 Year
  Sex: Female

DRUGS (4)
  1. ZOLOFT [Suspect]
     Indication: ANXIETY
     Dosage: 50 MG
     Dates: start: 20060801
  2. ALL OTHER THERAPEUTIC PRODUCTS [Concomitant]
  3. PAROXETINE HYDROCHLORIDE [Concomitant]
  4. OXAZEPAM [Concomitant]

REACTIONS (4)
  - EMOTIONAL DISTRESS [None]
  - FALL [None]
  - HEARING IMPAIRED [None]
  - TINNITUS [None]
